FAERS Safety Report 5015764-6 (Version None)
Quarter: 2006Q2

REPORT INFORMATION
  Report Type: 
  Country: None (occurrence: None)
  Receive Date: 20060525
  Receipt Date: 20060515
  Transmission Date: 20061013
  Serious: Yes (Death, Hospitalization)
  Sender: FDA-Public Use
  Company Number: FABR-11526

PATIENT
  Age: 58 Year
  Sex: Male

DRUGS (2)
  1. FABRAZYME [Suspect]
     Indication: FABRY'S DISEASE
  2. FABRAZYME [Suspect]
     Indication: FABRY'S DISEASE
     Dosage: 1 MG/KG Q2WKS IV
     Route: 042
     Dates: start: 20001219

REACTIONS (4)
  - COMA [None]
  - PERITONITIS [None]
  - STAPHYLOCOCCAL INFECTION [None]
  - STREPTOCOCCAL INFECTION [None]
